FAERS Safety Report 13381241 (Version 2)
Quarter: 2017Q2

REPORT INFORMATION
  Report Type: Spontaneous
  Country: US (occurrence: US)
  Receive Date: 20170329
  Receipt Date: 20170410
  Transmission Date: 20170830
  Serious: No
  Sender: FDA-Public Use
  Company Number: US-PFIZER INC-2017134947

PATIENT
  Age: 85 Year
  Sex: Female
  Weight: 57.14 kg

DRUGS (3)
  1. IBRANCE [Suspect]
     Active Substance: PALBOCICLIB
     Indication: BREAST CANCER METASTATIC
     Dosage: 125 MG, CYCLIC; (DAY 1-21 Q 28 DAYS)
     Route: 048
     Dates: start: 20170323, end: 20170327
  2. FENTANYL CITRATE. [Suspect]
     Active Substance: FENTANYL CITRATE
     Dosage: UNK
  3. IBRANCE [Suspect]
     Active Substance: PALBOCICLIB
     Dosage: 4 DF, UNK

REACTIONS (4)
  - Delusional perception [Unknown]
  - Hallucination [Unknown]
  - Gait disturbance [Unknown]
  - Hepatic lesion [Unknown]
